FAERS Safety Report 8054295-6 (Version None)
Quarter: 2012Q1

REPORT INFORMATION
  Report Type: 
  Country: None (occurrence: None)
  Receive Date: 20120118
  Receipt Date: 20120110
  Transmission Date: 20120608
  Serious: Yes (Hospitalization)
  Sender: FDA-Public Use
  Company Number: PHEH2012US001148

PATIENT
  Sex: Female

DRUGS (1)
  1. VALTURNA [Suspect]
     Dosage: 1 DF (150/160) QD
     Dates: start: 20110901, end: 20111201

REACTIONS (2)
  - CEREBROVASCULAR ACCIDENT [None]
  - HYPOAESTHESIA [None]
